FAERS Safety Report 9262673 (Version 1)
Quarter: 2013Q2

REPORT INFORMATION
  Report Type: Spontaneous
  Country: US (occurrence: None)
  Receive Date: 20130426
  Receipt Date: 20130426
  Transmission Date: 20140414
  Serious: Yes (Other)
  Sender: FDA-Public Use
  Company Number: None

PATIENT
  Age: 50 None
  Sex: Female

DRUGS (3)
  1. VICTRELIS [Suspect]
     Indication: CHRONIC HEPATITIS C
     Dosage: TID?
     Route: 048
     Dates: start: 20121216
  2. RIBASPHERE [Suspect]
     Dosage: DOSE 400-600
     Route: 048
  3. PEGASYS PROCLICK [Suspect]
     Dosage: 180 MCG SUBQ
     Route: 058

REACTIONS (1)
  - Eye haemorrhage [None]
